FAERS Safety Report 9355144 (Version 2)
Quarter: 2013Q3

REPORT INFORMATION
  Report Type: Spontaneous
  Country: AT (occurrence: AT)
  Receive Date: 20130619
  Receipt Date: 20130709
  Transmission Date: 20140515
  Serious: Yes (Hospitalization)
  Sender: FDA-Public Use
  Company Number: PHHY2013AT062152

PATIENT
  Age: 52 Year
  Sex: Male
  Weight: 79 kg

DRUGS (1)
  1. ACLASTA [Suspect]
     Indication: OSTEOPOROSIS
     Dosage: 5 MG, UNK
     Route: 042
     Dates: start: 20130507

REACTIONS (4)
  - Circulatory collapse [Unknown]
  - Headache [Not Recovered/Not Resolved]
  - Chills [Unknown]
  - Myalgia [Unknown]
